FAERS Safety Report 9994543 (Version 2)
Quarter: 2014Q1

REPORT INFORMATION
  Report Type: Spontaneous
  Country: US (occurrence: US)
  Receive Date: 20140311
  Receipt Date: 20140311
  Transmission Date: 20141002
  Serious: Yes (Other)
  Sender: FDA-Public Use
  Company Number: US-PFIZER INC-2013173525

PATIENT
  Age: 74 Year
  Sex: Male
  Weight: 77.1 kg

DRUGS (2)
  1. VIAGRA [Suspect]
     Indication: ERECTILE DYSFUNCTION
     Dosage: 100 MG, AS NEEDED
     Route: 048
  2. OXYCODONE [Concomitant]
     Indication: AMYOTROPHIC LATERAL SCLEROSIS
     Dosage: 80 MG, UNK

REACTIONS (3)
  - Hernia [Unknown]
  - Erythema [Unknown]
  - Nasal congestion [Unknown]
